FAERS Safety Report 15004600 (Version 1)
Quarter: 2018Q2

REPORT INFORMATION
  Report Type: Spontaneous
  Country: US (occurrence: US)
  Receive Date: 20180521
  Receipt Date: 20180521
  Transmission Date: 20180711
  Serious: Yes (Hospitalization)
  Sender: FDA-Public Use
  Company Number: None

PATIENT
  Age: 89 Year
  Sex: Female
  Weight: 47 kg

DRUGS (12)
  1. LANTUS [Suspect]
     Active Substance: INSULIN GLARGINE
     Indication: DIABETES MELLITUS
     Dosage: 5 UNITS NIGHTL
  2. AMIODARONE [Concomitant]
     Active Substance: AMIODARONE
  3. FOLTRIN [Concomitant]
  4. IMODIUM [Concomitant]
     Active Substance: LOPERAMIDE HYDROCHLORIDE
  5. APAP [Concomitant]
     Active Substance: ACETAMINOPHEN
  6. COREG [Concomitant]
     Active Substance: CARVEDILOL
  7. PRILOSEC [Concomitant]
     Active Substance: OMEPRAZOLE MAGNESIUM
  8. ELIQUIS [Concomitant]
     Active Substance: APIXABAN
  9. ALON [Concomitant]
  10. TESS [Concomitant]
  11. HUMULIN R [Suspect]
     Active Substance: INSULIN HUMAN
     Indication: DIABETES MELLITUS
     Dosage: SSI
  12. ALBUTEROL. [Concomitant]
     Active Substance: ALBUTEROL

REACTIONS (3)
  - Respiratory distress [None]
  - Hypoglycaemia [None]
  - Pneumonia [None]

NARRATIVE: CASE EVENT DATE: 20180130
